FAERS Safety Report 21305386 (Version 1)
Quarter: 2022Q3

REPORT INFORMATION
  Report Type: Spontaneous
  Country: SE (occurrence: SE)
  Receive Date: 20220908
  Receipt Date: 20220908
  Transmission Date: 20221027
  Serious: Yes (Death, Hospitalization)
  Sender: FDA-Public Use
  Company Number: SE-STRIDES ARCOLAB LIMITED-2022SP011185

PATIENT
  Age: 14 Year
  Sex: Female

DRUGS (14)
  1. OLANZAPINE [Suspect]
     Active Substance: OLANZAPINE
     Indication: Acute psychosis
     Dosage: 2.5 MILLIGRAM, QD
     Route: 065
  2. OLANZAPINE [Suspect]
     Active Substance: OLANZAPINE
     Indication: Neurodegenerative disorder
     Dosage: 5 MILLIGRAM, QD (DAY 2)
     Route: 065
  3. OLANZAPINE [Suspect]
     Active Substance: OLANZAPINE
     Indication: Hereditary disorder
  4. MELATONIN [Suspect]
     Active Substance: MELATONIN
     Indication: Neurodegenerative disorder
     Dosage: UNK, INITIATED AT THE AGE OF 14.5 YEARS
     Route: 065
  5. MELATONIN [Suspect]
     Active Substance: MELATONIN
     Indication: Hereditary disorder
  6. CLOZAPINE [Suspect]
     Active Substance: CLOZAPINE
     Indication: Acute psychosis
     Dosage: UNK
     Route: 065
  7. CLOZAPINE [Suspect]
     Active Substance: CLOZAPINE
     Indication: Neurodegenerative disorder
  8. CLOZAPINE [Suspect]
     Active Substance: CLOZAPINE
     Indication: Hereditary disorder
  9. SERTRALINE [Suspect]
     Active Substance: SERTRALINE HYDROCHLORIDE
     Indication: Acute psychosis
     Dosage: 50 MILLIGRAM, QD
     Route: 065
  10. SERTRALINE [Suspect]
     Active Substance: SERTRALINE HYDROCHLORIDE
     Indication: Neurodegenerative disorder
  11. SERTRALINE [Suspect]
     Active Substance: SERTRALINE HYDROCHLORIDE
     Indication: Hereditary disorder
  12. LEVETIRACETAM [Concomitant]
     Active Substance: LEVETIRACETAM
     Indication: Epilepsy
     Dosage: UNK, INITIATED AT THE AGE OF 12 YEARS
     Route: 065
  13. LEVETIRACETAM [Concomitant]
     Active Substance: LEVETIRACETAM
     Indication: Neurodegenerative disorder
  14. LEVETIRACETAM [Concomitant]
     Active Substance: LEVETIRACETAM
     Indication: Hereditary disorder

REACTIONS (4)
  - Hyperthermia [Fatal]
  - Rhabdomyolysis [Fatal]
  - Neuroleptic malignant syndrome [Fatal]
  - Off label use [Unknown]
